FAERS Safety Report 5285718-3 (Version None)
Quarter: 2007Q1

REPORT INFORMATION
  Report Type: 
  Country: None (occurrence: None)
  Receive Date: 20070126
  Receipt Date: 20061030
  Transmission Date: 20070707
  Serious: No
  Sender: FDA-Public Use
  Company Number: 2006-BP-10730BP

PATIENT
  Age: 28 Year
  Sex: Male
  Weight: 79.38 kg

DRUGS (7)
  1. APTIVUS/RITONAVIR CAPSULES (ALL OTHER THERAPETIC PRODUCTS) [Suspect]
     Indication: HIV INFECTION
     Dosage: SEE TEXT (SEE TEXT,TIPRANAVIR 250MG/RITONAVIR 100MG. DAILY DOSE: 250 MG)
     Dates: start: 20060613
  2. FUZEON [Concomitant]
  3. DIFLUCAN (ALL OTHER THERAPEUTIC PRODUCTS) [Concomitant]
  4. TRUVADA [Concomitant]
  5. NEUPOGEN [Concomitant]
  6. BIAXIN [Concomitant]
  7. ETHAMBUTOL HYDROCHLORIDE [Concomitant]

REACTIONS (1)
  - HAEMORRHAGE [None]
